FAERS Safety Report 6315014-4 (Version None)
Quarter: 2009Q3

REPORT INFORMATION
  Report Type: 
  Country: None (occurrence: None)
  Receive Date: 20090819
  Receipt Date: 20090807
  Transmission Date: 20100115
  Serious: Yes (Hospitalization, Other)
  Sender: FDA-Public Use
  Company Number: SE-JNJFOC-20090603799

PATIENT
  Age: 16 Year
  Sex: Female

DRUGS (8)
  1. REMICADE [Suspect]
     Route: 042
  2. REMICADE [Suspect]
     Indication: COLITIS ULCERATIVE
     Dosage: RECEIVED 2 TREATMENTS WITHIN A TIME PERIOD OF 2 WEEKS.
     Route: 042
  3. SALAZOPYRIN [Concomitant]
     Route: 048
  4. NEXIUM [Concomitant]
     Route: 048
  5. PREDNISOLONE [Concomitant]
     Route: 048
  6. FLAGYL [Concomitant]
     Route: 048
  7. ASACOL [Concomitant]
     Route: 054
  8. FOLACIN [Concomitant]
     Route: 048

REACTIONS (3)
  - CYTOMEGALOVIRUS COLITIS [None]
  - DRUG EXPOSURE DURING PREGNANCY [None]
  - LISTERIA SEPSIS [None]
